FAERS Safety Report 5803163-6 (Version None)
Quarter: 2008Q3

REPORT INFORMATION
  Report Type: 
  Country: None (occurrence: None)
  Receive Date: 20080708
  Receipt Date: 20080624
  Transmission Date: 20090109
  Serious: Yes (Hospitalization)
  Sender: FDA-Public Use
  Company Number: US-ELI_LILLY_AND_COMPANY-USA041080342

PATIENT
  Sex: Female
  Weight: 77.727 kg

DRUGS (9)
  1. CYMBALTA [Suspect]
     Indication: DEPRESSION
     Dosage: 60 MG, DAILY (1/D)
     Route: 048
     Dates: start: 20040901, end: 20040929
  2. DICLOFENAC W/MISOPROSTOL [Concomitant]
     Indication: ARTHRITIS
     Dosage: UNK, UNKNOWN
  3. INDERAL [Concomitant]
     Dosage: UNK, UNKNOWN
  4. ACIPHEX [Concomitant]
     Dosage: UNK, UNKNOWN
  5. CLONOPIN [Concomitant]
     Dosage: UNK, UNKNOWN
  6. ALLEGRA [Concomitant]
     Dosage: UNK, UNKNOWN
  7. AMARYL [Concomitant]
     Indication: DIABETES MELLITUS
     Dosage: UNK, UNKNOWN
     Route: 048
  8. ADALAT [Concomitant]
     Dosage: UNK, UNKNOWN
  9. ZOMIG [Concomitant]
     Dosage: UNK, AS NEEDED

REACTIONS (2)
  - HEPATIC STEATOSIS [None]
  - HEPATITIS [None]
